FAERS Safety Report 20904300 (Version 3)
Quarter: 2024Q4

REPORT INFORMATION
  Report Type: Spontaneous
  Country: JP (occurrence: JP)
  Receive Date: 20220602
  Receipt Date: 20241016
  Transmission Date: 20250115
  Serious: Yes (Other)
  Sender: TEVA
  Company Number: JP-SA-SAC20220524001830

PATIENT
  Age: 7 Decade
  Sex: Female

DRUGS (14)
  1. LANSOPRAZOLE [Suspect]
     Active Substance: LANSOPRAZOLE
     Indication: Product used for unknown indication
     Dosage: DOSAGE TEXT: DOSAGE IS UNKNOWN, CAPSULES 15
     Route: 065
  2. LACTOBACILLUS ACIDOPHILUS [Concomitant]
     Active Substance: LACTOBACILLUS ACIDOPHILUS
     Dosage: DOSAGE TEXT: DOSAGE IS UNKNOWN
     Route: 065
  3. HERBALS [Concomitant]
     Active Substance: HERBALS
     Dosage: DOSAGE TEXT: DOSAGE IS UNKNOWN
     Route: 065
  4. LOPERAMIDE [Concomitant]
     Active Substance: LOPERAMIDE
     Dosage: DOSAGE TEXT: DOSAGE IS UNKNOWN
     Route: 065
  5. FAMOTIDINE [Concomitant]
     Active Substance: FAMOTIDINE
     Dosage: DOSAGE TEXT: DOSAGE IS UNKNOWN
     Route: 065
  6. ELNEOPA NF NO.1 [Concomitant]
     Dosage: DOSAGE TEXT: DOSAGE IS UNKNOWN
     Route: 065
  7. AMLODIPINE [Suspect]
     Active Substance: AMLODIPINE BESYLATE
     Indication: Product used for unknown indication
     Dosage: DOSAGE TEXT: DOSAGE IS UNKNOWN,  OD TABLET 10MG ^TYK^
     Route: 065
  8. LEVOFLOXACIN [Suspect]
     Active Substance: LEVOFLOXACIN
     Indication: Product used for unknown indication
     Dosage: DOSAGE TEXT: DOSAGE IS UNKNOWN
     Route: 048
  9. ACETAMINOPHEN [Suspect]
     Active Substance: ACETAMINOPHEN
     Indication: Product used for unknown indication
     Dosage: DOSAGE TEXT: DOSAGE IS UNKNOWN
     Route: 065
  10. FEBUXOSTAT [Suspect]
     Active Substance: FEBUXOSTAT
     Indication: Product used for unknown indication
     Dosage: DOSAGE TEXT: DOSAGE IS UNKNOWN
     Route: 065
  11. BROMHEXINE HYDROCHLORIDE [Suspect]
     Active Substance: BROMHEXINE HYDROCHLORIDE
     Indication: Product used for unknown indication
     Dosage: DOSAGE TEXT: DOSAGE IS UNKNOWN
     Route: 065
  12. ALFACALCIDOL [Suspect]
     Active Substance: ALFACALCIDOL
     Indication: Product used for unknown indication
     Dosage: DOSAGE TEXT: DOSAGE IS UNKNOWN,  CAPSULE 3 G ^TEVA^
     Route: 065
  13. CLOSTRIDIUM BUTYRICUM [Concomitant]
     Dosage: DOSAGE TEXT: DOSAGE IS UNKNOWN
     Route: 065
  14. DEXTROSE [Concomitant]
     Active Substance: DEXTROSE MONOHYDRATE
     Dosage: DOSAGE TEXT: DOSAGE IS UNKNOWN
     Route: 065

REACTIONS (3)
  - Diarrhoea [Recovering/Resolving]
  - Pneumonia [Unknown]
  - Ileus paralytic [Unknown]
